FAERS Safety Report 8366496-8 (Version None)
Quarter: 2012Q2

REPORT INFORMATION
  Report Type: 
  Country: None (occurrence: None)
  Receive Date: 20120517
  Receipt Date: 20120516
  Transmission Date: 20120825
  Serious: No
  Sender: FDA-Public Use
  Company Number: US-PFIZER INC-2012119407

PATIENT
  Sex: Male

DRUGS (3)
  1. LYRICA [Suspect]
     Indication: PAIN
     Dosage: 150 MG, 3X/DAY
     Dates: start: 20120401, end: 20120101
  2. LYRICA [Suspect]
     Indication: NEUROPATHY PERIPHERAL
     Dosage: 100 MG, 3X/DAY
     Dates: start: 20120401, end: 20120401
  3. LYRICA [Suspect]
     Dosage: UNK, 3X/DAY
     Dates: start: 20120101

REACTIONS (2)
  - BURNING SENSATION [None]
  - VISION BLURRED [None]
